FAERS Safety Report 21526029 (Version 1)
Quarter: 2022Q4

REPORT INFORMATION
  Report Type: Spontaneous
  Country: CN (occurrence: CN)
  Receive Date: 20221031
  Receipt Date: 20221031
  Transmission Date: 20230113
  Serious: Yes (Hospitalization, Other)
  Sender: FDA-Public Use
  Company Number: CN-BAYER-2022A148545

PATIENT
  Age: 83 Year
  Sex: Female

DRUGS (1)
  1. XARELTO [Suspect]
     Active Substance: RIVAROXABAN
     Indication: Atrial fibrillation
     Dosage: 10 MG, QD
     Route: 048
     Dates: start: 20220101, end: 20220825

REACTIONS (11)
  - Melaena [Recovering/Resolving]
  - Palpitations [Recovering/Resolving]
  - Gastritis erosive [Recovering/Resolving]
  - Erosive oesophagitis [Recovering/Resolving]
  - Duodenal ulcer [Recovering/Resolving]
  - Duodenal bulb deformity [Recovering/Resolving]
  - Chronic gastritis [Recovering/Resolving]
  - Blood loss anaemia [Recovering/Resolving]
  - Sinus tachycardia [Recovering/Resolving]
  - Prescribed underdose [Unknown]
  - Underdose [Unknown]

NARRATIVE: CASE EVENT DATE: 20220101
